FAERS Safety Report 23872226 (Version 1)
Quarter: 2024Q2

REPORT INFORMATION
  Report Type: Spontaneous
  Country: US (occurrence: US)
  Receive Date: 20240520
  Receipt Date: 20240520
  Transmission Date: 20240716
  Serious: No
  Sender: FDA-Public Use
  Company Number: US-TEVA-VS-3193552

PATIENT
  Sex: Female

DRUGS (1)
  1. CARBIDOPA\LEVODOPA [Suspect]
     Active Substance: CARBIDOPA\LEVODOPA
     Indication: Parkinson^s disease
     Dosage: STRENGTH: 25 / 100 MG
     Route: 065

REACTIONS (5)
  - Lethargy [Unknown]
  - Dysarthria [Unknown]
  - Gait disturbance [Unknown]
  - Cognitive disorder [Unknown]
  - Drug ineffective [Unknown]
